FAERS Safety Report 8988870 (Version 2)
Quarter: 2013Q1

REPORT INFORMATION
  Report Type: Spontaneous
  Country: US (occurrence: US)
  Receive Date: 20121228
  Receipt Date: 20130123
  Transmission Date: 20140127
  Serious: No
  Sender: FDA-Public Use
  Company Number: US-009507513-1212USA007755

PATIENT
  Age: 73 Year
  Sex: Male

DRUGS (4)
  1. ASMANEX TWISTHALER [Suspect]
     Indication: CHRONIC OBSTRUCTIVE PULMONARY DISEASE
     Dosage: TWO INHALES EVERY DAY
     Route: 055
     Dates: start: 200912
  2. SPIRIVA [Concomitant]
  3. LOSARTAN POTASSIUM [Concomitant]
  4. THYROID [Concomitant]

REACTIONS (3)
  - Cough [Not Recovered/Not Resolved]
  - Product quality issue [Unknown]
  - Expired drug administered [Unknown]
